FAERS Safety Report 15617996 (Version 4)
Quarter: 2019Q1

REPORT INFORMATION
  Report Type: Report from Study
  Country: CO (occurrence: CO)
  Receive Date: 20181114
  Receipt Date: 20190315
  Transmission Date: 20190417
  Serious: Yes (Hospitalization, Other)
  Sender: FDA-Public Use
  Company Number: CO-SEATTLE GENETICS-2018SGN02916

PATIENT
  Age: 18 Year
  Sex: Male
  Weight: 28 kg

DRUGS (1)
  1. BRENTUXIMAB VEDOTIN-MPI [Suspect]
     Active Substance: BRENTUXIMAB VEDOTIN
     Indication: HODGKIN^S DISEASE
     Dosage: 63 MG, Q21D
     Route: 042
     Dates: start: 20180720

REACTIONS (6)
  - Listeriosis [Unknown]
  - Pyrexia [Unknown]
  - Oral pain [Unknown]
  - Underweight [Unknown]
  - Chest wall abscess [Unknown]
  - Seizure [Unknown]

NARRATIVE: CASE EVENT DATE: 20181107
